FAERS Safety Report 11271626 (Version 3)
Quarter: 2015Q4

REPORT INFORMATION
  Report Type: Spontaneous
  Country: FR (occurrence: FR)
  Receive Date: 20150715
  Receipt Date: 20151223
  Transmission Date: 20160304
  Serious: Yes (Hospitalization)
  Sender: FDA-Public Use
  Company Number: FR-MERCK-1507FRA005778

PATIENT
  Age: 78 Year
  Sex: Male

DRUGS (7)
  1. ONBREZ [Concomitant]
     Active Substance: INDACATEROL
     Dosage: 1 DF, QD
     Route: 055
  2. URBANYL [Suspect]
     Active Substance: CLOBAZAM
     Dosage: 1 DF, QD/10MG IN THE EVENING
     Route: 048
     Dates: end: 20150502
  3. LASILIX [Suspect]
     Active Substance: FUROSEMIDE
     Indication: RASH
     Dosage: 20 MG DAILY
     Route: 048
     Dates: end: 20150410
  4. AERIUS [Suspect]
     Active Substance: DESLORATADINE
     Dosage: 1 DF, QD/5 MG IN THE EVENING
     Route: 048
     Dates: end: 20150502
  5. CHONDROSULF [Suspect]
     Active Substance: CHONDROITIN SULFATE (CHICKEN)
     Dosage: 1 DF, TID/3 CAPSULES IN THE MORNING
     Route: 048
     Dates: end: 20150502
  6. AZITHROMYCIN [Suspect]
     Active Substance: AZITHROMYCIN ANHYDROUS
     Dosage: UNK
     Route: 048
     Dates: start: 201502, end: 201502
  7. RHINOCORT [Suspect]
     Active Substance: BUDESONIDE
     Dosage: 1 DF, QD/0.06MG ON SPRAY IN THE MORNING IN EACH NOSTRIL
     Route: 045
     Dates: end: 20150502

REACTIONS (3)
  - Rash maculo-papular [Recovered/Resolved]
  - Eczema [Recovered/Resolved]
  - Pruritus [Recovered/Resolved]

NARRATIVE: CASE EVENT DATE: 201502
